FAERS Safety Report 19999880 (Version 4)
Quarter: 2022Q1

REPORT INFORMATION
  Report Type: Spontaneous
  Country: AT (occurrence: AT)
  Receive Date: 20211027
  Receipt Date: 20220308
  Transmission Date: 20220423
  Serious: Yes (Other)
  Sender: FDA-Public Use
  Company Number: AT-CELLTRION INC.-2021AT014481

PATIENT

DRUGS (10)
  1. RITUXIMAB [Suspect]
     Active Substance: RITUXIMAB
     Indication: Graft versus host disease
     Dosage: CONCENTRATE FOR SOLUTION FOR INFUSION
  2. RITUXIMAB [Suspect]
     Active Substance: RITUXIMAB
     Indication: Prophylaxis against transplant rejection
  3. CYCLOSPORINE [Suspect]
     Active Substance: CYCLOSPORINE
     Indication: Graft versus host disease
     Dosage: UNK
  4. CYCLOSPORINE [Suspect]
     Active Substance: CYCLOSPORINE
     Indication: Prophylaxis against transplant rejection
  5. TACROLIMUS [Suspect]
     Active Substance: TACROLIMUS
     Indication: Graft versus host disease
     Dosage: UNK
  6. TACROLIMUS [Suspect]
     Active Substance: TACROLIMUS
     Indication: Prophylaxis against transplant rejection
  7. SIROLIMUS [Suspect]
     Active Substance: SIROLIMUS
     Indication: Graft versus host disease
     Dosage: UNK
  8. SIROLIMUS [Suspect]
     Active Substance: SIROLIMUS
     Indication: Prophylaxis against transplant rejection
  9. IMATINIB [Suspect]
     Active Substance: IMATINIB
     Indication: Graft versus host disease
     Dosage: UNK
  10. IMATINIB [Suspect]
     Active Substance: IMATINIB
     Indication: Prophylaxis against transplant rejection

REACTIONS (7)
  - Joint range of motion decreased [Recovered/Resolved]
  - Scleroderma [Recovering/Resolving]
  - Disease progression [Recovered/Resolved]
  - Off label use [Unknown]
  - Drug ineffective for unapproved indication [Unknown]
  - Skin mass [Unknown]
  - Off label use [Unknown]
